FAERS Safety Report 7119566-6 (Version None)
Quarter: 2010Q4

REPORT INFORMATION
  Report Type: 
  Country: None (occurrence: None)
  Receive Date: 20101123
  Receipt Date: 20101117
  Transmission Date: 20110411
  Serious: Yes (Other)
  Sender: FDA-Public Use
  Company Number: CA-ABBOTT-10P-028-0658779-00

PATIENT
  Sex: Male
  Weight: 106.69 kg

DRUGS (1)
  1. LUPRON DEPOT [Suspect]
     Indication: PROSTATE CANCER
     Dates: start: 20061107

REACTIONS (3)
  - GENITAL BURNING SENSATION [None]
  - NASAL DISORDER [None]
  - PROSTATIC SPECIFIC ANTIGEN INCREASED [None]
